FAERS Safety Report 9152401 (Version 1)
Quarter: 2013Q1

REPORT INFORMATION
  Report Type: Spontaneous
  Country: SE (occurrence: SE)
  Receive Date: 20130308
  Receipt Date: 20130308
  Transmission Date: 20140127
  Serious: Yes (Disabling, Other)
  Sender: FDA-Public Use
  Company Number: SE-BAXTER-2013BAX007980

PATIENT
  Sex: Female

DRUGS (2)
  1. SENDOXAN [Suspect]
     Indication: VASCULITIS
     Dosage: 5 PULSE DOSES
     Route: 065
  2. SENDOXAN [Suspect]
     Dosage: 5 PULSE DOSES
     Route: 065
     Dates: start: 20121220

REACTIONS (5)
  - Nervous system disorder [Not Recovered/Not Resolved]
  - Polyneuropathy [Not Recovered/Not Resolved]
  - Gait disturbance [Not Recovered/Not Resolved]
  - Faecal incontinence [Not Recovered/Not Resolved]
  - Urinary incontinence [Not Recovered/Not Resolved]
